FAERS Safety Report 21594364 (Version 1)
Quarter: 2022Q4

REPORT INFORMATION
  Report Type: Spontaneous
  Country: US (occurrence: None)
  Receive Date: 20221115
  Receipt Date: 20221115
  Transmission Date: 20230113
  Serious: Yes (Other)
  Sender: FDA-Public Use
  Company Number: US-ROCHE-3143452

PATIENT
  Sex: Female

DRUGS (1)
  1. VABYSMO [Suspect]
     Active Substance: FARICIMAB-SVOA
     Indication: Product used for unknown indication
     Route: 065
     Dates: start: 202202

REACTIONS (5)
  - Eye inflammation [Unknown]
  - Endophthalmitis [Unknown]
  - Eye disorder [Unknown]
  - Retinal haemorrhage [Unknown]
  - Vitritis [Unknown]
